APPROVED DRUG PRODUCT: KISQALI FEMARA CO-PACK (COPACKAGED)
Active Ingredient: LETROZOLE; RIBOCICLIB SUCCINATE
Strength: 2.5MG;EQ 200MG BASE
Dosage Form/Route: TABLET;ORAL
Application: N209935 | Product #001
Applicant: NOVARTIS PHARMACEUTICALS CORP
Approved: May 4, 2017 | RLD: Yes | RS: Yes | Type: RX

PATENTS:
Patent 8962630 | Expires: Dec 9, 2029
Patent 9416136 | Expires: Aug 20, 2029
Patent 9868739 | Expires: Nov 9, 2031
Patent 9416136 | Expires: Aug 20, 2029
Patent 8962630 | Expires: Dec 9, 2029
Patent 12544380 | Expires: Aug 7, 2034
Patent 12544380 | Expires: Aug 7, 2034
Patent 9868739 | Expires: Nov 9, 2031
Patent 8962630 | Expires: Dec 9, 2029
Patent 9416136 | Expires: Aug 20, 2029
Patent 9868739 | Expires: Nov 9, 2031
Patent 8415355 | Expires: Mar 13, 2031
Patent 12419894 | Expires: Apr 14, 2036
Patent 10799506 | Expires: Apr 14, 2036
Patent 8324225 | Expires: Jun 17, 2028
Patent 12064434 | Expires: Apr 14, 2036
Patent 8685980 | Expires: May 25, 2030
Patent 9193732 | Expires: Nov 9, 2031

EXCLUSIVITY:
Code: I-951 | Date: Sep 17, 2027